FAERS Safety Report 15267208 (Version 1)
Quarter: 2018Q3

REPORT INFORMATION
  Report Type: Report from Study
  Country: FR (occurrence: FR)
  Receive Date: 20180810
  Receipt Date: 20180810
  Transmission Date: 20181010
  Serious: Yes (Hospitalization)
  Sender: FDA-Public Use
  Company Number: FR-TEVA-2018-FR-937578

PATIENT
  Age: 78 Year
  Sex: Male

DRUGS (3)
  1. DOCETAXEL. [Suspect]
     Active Substance: DOCETAXEL
     Route: 051
  2. CORTISONE [Suspect]
     Active Substance: CORTISONE\HYDROCORTISONE
     Route: 065
  3. XARELTO [Suspect]
     Active Substance: RIVAROXABAN
     Route: 065
     Dates: end: 201708

REACTIONS (22)
  - Alopecia [Recovering/Resolving]
  - Hypersensitivity [Unknown]
  - Fatigue [Not Recovered/Not Resolved]
  - Haematoma [Not Recovered/Not Resolved]
  - Prostatic specific antigen increased [Unknown]
  - Tinnitus [Recovering/Resolving]
  - Throat tightness [Unknown]
  - Gait disturbance [Unknown]
  - Dyspnoea exertional [Unknown]
  - Toothache [Recovering/Resolving]
  - Hypoaesthesia [Unknown]
  - Constipation [Unknown]
  - Dyspnoea [Unknown]
  - Peripheral sensory neuropathy [Unknown]
  - Muscle spasms [Recovering/Resolving]
  - Decreased appetite [Unknown]
  - Pain in extremity [Recovering/Resolving]
  - Syncope [Unknown]
  - Cardiac disorder [Unknown]
  - Arthralgia [Unknown]
  - Weight decreased [Unknown]
  - Ageusia [Unknown]

NARRATIVE: CASE EVENT DATE: 20170628
